FAERS Safety Report 5256298-3 (Version None)
Quarter: 2007Q1

REPORT INFORMATION
  Report Type: 
  Country: None (occurrence: None)
  Receive Date: 20061204
  Receipt Date: 20060822
  Transmission Date: 20070707
  Serious: No
  Sender: FDA-Public Use
  Company Number: 2006-BP-09758BP

PATIENT
  Sex: Female

DRUGS (2)
  1. SPIRIVA [Suspect]
     Indication: CHRONIC OBSTRUCTIVE PULMONARY DISEASE
     Dosage: 10 MCG (19 MCG, 1 IN 1 D), IH
     Route: 055
     Dates: start: 20060101
  2. ADVAIR (SERETIDE /01420901/) [Suspect]
     Indication: CHRONIC OBSTRUCTIVE PULMONARY DISEASE
     Dosage: SEE TEXT (DISKUS BID), IH
     Route: 055
     Dates: start: 20060101, end: 20060601

REACTIONS (3)
  - CATARACT [None]
  - MACULAR DEGENERATION [None]
  - VISUAL ACUITY REDUCED [None]
